FAERS Safety Report 12935737 (Version 1)
Quarter: 2016Q4

REPORT INFORMATION
  Report Type: Spontaneous
  Country: GB (occurrence: GB)
  Receive Date: 20161114
  Receipt Date: 20161114
  Transmission Date: 20170207
  Serious: Yes (Hospitalization, Other)
  Sender: FDA-Public Use
  Company Number: GB-ACCORD-045601

PATIENT
  Age: 70 Year
  Sex: Female

DRUGS (3)
  1. GABAPENTIN WINTHROP PHARMS UK [Suspect]
     Active Substance: GABAPENTIN
     Indication: PRODUCT USED FOR UNKNOWN INDICATION
     Dosage: COMBINED THERAPY DURATION 3 MONTHS (ACTAVIS AND ZENTIVA)
     Route: 065
  2. GABAPENTIN ACTAVIS UK [Suspect]
     Active Substance: GABAPENTIN
     Indication: PRODUCT USED FOR UNKNOWN INDICATION
     Dosage: COMBINED THERAPY DURATION 3 MONTHS (ACTAVIS AND ZENTIVA)
     Route: 065
  3. AMITRIPTYLINE [Suspect]
     Active Substance: AMITRIPTYLINE
     Indication: PRODUCT USED FOR UNKNOWN INDICATION
     Dosage: 35 MILLIGRAM DAILY; 35 MG PER NIGHT
     Route: 065

REACTIONS (4)
  - Tongue biting [Unknown]
  - Dry mouth [Recovering/Resolving]
  - Tongue ulceration [Unknown]
  - Weight increased [Unknown]

NARRATIVE: CASE EVENT DATE: 201507
